FAERS Safety Report 6132691-1 (Version None)
Quarter: 2009Q1

REPORT INFORMATION
  Report Type: 
  Country: None (occurrence: None)
  Receive Date: 20090324
  Receipt Date: 20090324
  Transmission Date: 20090719
  Serious: Yes (Other)
  Sender: FDA-Public Use
  Company Number: None

PATIENT
  Sex: Female
  Weight: 60.3284 kg

DRUGS (6)
  1. ALENDRONATE SODIUM [Suspect]
     Indication: OSTEOPENIA
     Dates: start: 20081001, end: 20081204
  2. ALENDRONATE SODIUM [Suspect]
     Indication: POSTMENOPAUSE
     Dates: start: 20081001, end: 20081204
  3. SYNTHROID [Concomitant]
  4. VITAMIN B-12 [Concomitant]
  5. CA + VIT D [Concomitant]
  6. ASPIRIN [Concomitant]

REACTIONS (4)
  - GASTRITIS [None]
  - HYPERTENSION [None]
  - MUSCLE SPASMS [None]
  - PRODUCT QUALITY ISSUE [None]
